FAERS Safety Report 20703051 (Version 1)
Quarter: 2022Q2

REPORT INFORMATION
  Report Type: Spontaneous
  Country: US (occurrence: US)
  Receive Date: 20220413
  Receipt Date: 20220413
  Transmission Date: 20220720
  Serious: Yes (Other)
  Sender: FDA-Public Use
  Company Number: US-CELLTRION INC.-2022US004255

PATIENT

DRUGS (4)
  1. TRUXIMA [Suspect]
     Active Substance: RITUXIMAB-ABBS
     Indication: Warm autoimmune haemolytic anaemia
     Dosage: 950MG ONCE A WEEK
     Dates: start: 20220118
  2. TRUXIMA [Suspect]
     Active Substance: RITUXIMAB-ABBS
     Dosage: 950MG ONCE A WEEK
     Dates: start: 20220125
  3. TRUXIMA [Suspect]
     Active Substance: RITUXIMAB-ABBS
     Dosage: 950MG ONCE A WEEK
     Dates: start: 20220201
  4. TRUXIMA [Suspect]
     Active Substance: RITUXIMAB-ABBS
     Dosage: 950MG ONCE A WEEK
     Dates: start: 20220208

REACTIONS (2)
  - Warm autoimmune haemolytic anaemia [Unknown]
  - Off label use [Unknown]
